FAERS Safety Report 8892918 (Version 1)
Quarter: 2012Q4

REPORT INFORMATION
  Report Type: 
  Country: US (occurrence: US)
  Receive Date: 20121107
  Receipt Date: 20121107
  Transmission Date: 20130627
  Serious: No
  Sender: FDA-Public Use
  Company Number: US-AMGEN-USASP2011059464

PATIENT
  Sex: Male
  Weight: 104.31 kg

DRUGS (5)
  1. ENBREL [Suspect]
     Indication: PRODUCT USED FOR UNKNOWN INDICATION
     Dosage: 50 mg, qwk
     Route: 058
  2. FLUTICASONE [Concomitant]
     Dosage: 50 mug, UNK
  3. LISINOPRIL [Concomitant]
     Dosage: 5 mg, UNK
  4. TRAZODONE [Concomitant]
     Dosage: 150 mg, UNK
  5. ANTIHISTAMINES [Concomitant]
     Dosage: 25 mg, UNK

REACTIONS (2)
  - Fatigue [Unknown]
  - Myalgia [Unknown]
